FAERS Safety Report 15773567 (Version 1)
Quarter: 2018Q4

REPORT INFORMATION
  Report Type: Report from Study
  Country: JP (occurrence: JP)
  Receive Date: 20181228
  Receipt Date: 20181228
  Transmission Date: 20190205
  Serious: Yes (Other)
  Sender: FDA-Public Use
  Company Number: JP-AMGEN-JPNNI2018185960

PATIENT
  Age: 77 Year
  Sex: Female

DRUGS (43)
  1. PEGFILGRASTIM [Suspect]
     Active Substance: PEGFILGRASTIM
     Indication: COLONY STIMULATING FACTOR THERAPY
     Dosage: 3.6 MG, UNK
     Route: 058
     Dates: start: 20170504, end: 20170504
  2. DOXORUBICIN [Suspect]
     Active Substance: DOXORUBICIN
     Dosage: 78 MG, UNK
     Route: 041
     Dates: start: 20170725, end: 20170725
  3. CYCLOPHOSPHAMIDE. [Suspect]
     Active Substance: CYCLOPHOSPHAMIDE
     Dosage: 1150 MG, UNK
     Route: 041
     Dates: start: 20170815, end: 20170815
  4. PREDONINE [Suspect]
     Active Substance: PREDNISOLONE
     Dosage: 100 MG, UNK
     Route: 048
     Dates: start: 20170725, end: 20170729
  5. RITUXAN [Suspect]
     Active Substance: RITUXIMAB
     Indication: NON-HODGKIN^S LYMPHOMA STAGE II
     Dosage: 600 MG, UNK
     Route: 041
     Dates: start: 20170509, end: 20170509
  6. RITUXAN [Suspect]
     Active Substance: RITUXIMAB
     Dosage: 600 MG, UNK
     Route: 041
     Dates: start: 20170620, end: 20170620
  7. RASILEZ [Concomitant]
     Active Substance: ALISKIREN
     Indication: HYPERTENSION
     Dosage: UNK
     Route: 048
  8. PEGFILGRASTIM [Suspect]
     Active Substance: PEGFILGRASTIM
     Dosage: 3.6 MG, UNK
     Route: 058
     Dates: start: 20170525, end: 20170525
  9. DOXORUBICIN [Suspect]
     Active Substance: DOXORUBICIN
     Dosage: 79 MG, UNK
     Route: 041
     Dates: start: 20170613, end: 20170613
  10. PREDONINE [Suspect]
     Active Substance: PREDNISOLONE
     Dosage: 100 MG, UNK
     Route: 048
     Dates: start: 20170613, end: 20170617
  11. PEGFILGRASTIM [Suspect]
     Active Substance: PEGFILGRASTIM
     Dosage: 3.6 MG, UNK
     Route: 058
     Dates: start: 20170727, end: 20170727
  12. DOXORUBICIN [Suspect]
     Active Substance: DOXORUBICIN
     Dosage: 77 MG, UNK
     Route: 041
     Dates: start: 20170815, end: 20170815
  13. CYCLOPHOSPHAMIDE. [Suspect]
     Active Substance: CYCLOPHOSPHAMIDE
     Dosage: 1200 MG, UNK
     Route: 041
     Dates: start: 20170613, end: 20170613
  14. CYCLOPHOSPHAMIDE. [Suspect]
     Active Substance: CYCLOPHOSPHAMIDE
     Dosage: 1150 MG, UNK
     Route: 041
     Dates: start: 20170725, end: 20170725
  15. ONCOVIN [Suspect]
     Active Substance: VINCRISTINE SULFATE
     Indication: NON-HODGKIN^S LYMPHOMA STAGE II
     Dosage: 2 MG, UNK
     Route: 041
     Dates: start: 20170502, end: 20170502
  16. RITUXAN [Suspect]
     Active Substance: RITUXIMAB
     Dosage: 600 MG, UNK
     Route: 041
     Dates: start: 20170711, end: 20170711
  17. PEGFILGRASTIM [Suspect]
     Active Substance: PEGFILGRASTIM
     Dosage: 3.6 MG, UNK
     Route: 058
     Dates: start: 20170615, end: 20170615
  18. PEGFILGRASTIM [Suspect]
     Active Substance: PEGFILGRASTIM
     Dosage: 3.6 MG, UNK
     Route: 058
     Dates: start: 20170706, end: 20170706
  19. DOXORUBICIN [Suspect]
     Active Substance: DOXORUBICIN
     Indication: NON-HODGKIN^S LYMPHOMA STAGE II
     Dosage: 79 MG, UNK
     Route: 041
     Dates: start: 20170502, end: 20170502
  20. CYCLOPHOSPHAMIDE. [Suspect]
     Active Substance: CYCLOPHOSPHAMIDE
     Indication: NON-HODGKIN^S LYMPHOMA STAGE II
     Dosage: 1200 MG, UNK
     Route: 041
     Dates: start: 20170502, end: 20170502
  21. CYCLOPHOSPHAMIDE. [Suspect]
     Active Substance: CYCLOPHOSPHAMIDE
     Dosage: 1200 MG, UNK
     Route: 041
     Dates: start: 20170523, end: 20170523
  22. ONCOVIN [Suspect]
     Active Substance: VINCRISTINE SULFATE
     Dosage: 2 MG, UNK
     Route: 041
     Dates: start: 20170613, end: 20170613
  23. ONCOVIN [Suspect]
     Active Substance: VINCRISTINE SULFATE
     Dosage: 2 MG, UNK
     Route: 041
     Dates: start: 20170704, end: 20170704
  24. REZALTAS [Concomitant]
     Active Substance: AZELNIDIPINE\OLMESARTAN MEDOXOMIL
     Indication: HYPERTENSION
     Dosage: UNK
     Route: 048
  25. UNISIA [Concomitant]
     Active Substance: AMLODIPINE BESYLATE\CANDESARTAN CILEXETIL
     Indication: HYPERTENSION
     Dosage: UNK
     Route: 048
  26. ONCOVIN [Suspect]
     Active Substance: VINCRISTINE SULFATE
     Dosage: 2 MG, UNK
     Route: 041
     Dates: start: 20170725, end: 20170725
  27. PREDONINE [Suspect]
     Active Substance: PREDNISOLONE
     Dosage: 100 MG, UNK
     Route: 048
     Dates: start: 20170815, end: 20170819
  28. PROTECADIN [Concomitant]
     Active Substance: LAFUTIDINE
     Indication: PRODUCT USED FOR UNKNOWN INDICATION
     Dosage: UNK
     Route: 048
  29. PEGFILGRASTIM [Suspect]
     Active Substance: PEGFILGRASTIM
     Dosage: 3.6 MG, UNK
     Route: 058
     Dates: start: 20170817, end: 20170817
  30. DOXORUBICIN [Suspect]
     Active Substance: DOXORUBICIN
     Dosage: 79 MG, UNK
     Route: 041
     Dates: start: 20170523, end: 20170523
  31. RITUXAN [Suspect]
     Active Substance: RITUXIMAB
     Dosage: 600 MG, UNK
     Route: 041
     Dates: start: 20170801, end: 20170801
  32. RITUXAN [Suspect]
     Active Substance: RITUXIMAB
     Dosage: 600 MG, UNK
     Route: 041
     Dates: start: 20170822, end: 20170822
  33. PRAVASTATIN. [Concomitant]
     Active Substance: PRAVASTATIN
     Indication: DYSLIPIDAEMIA
     Dosage: UNK
     Route: 048
  34. DOXORUBICIN [Suspect]
     Active Substance: DOXORUBICIN
     Dosage: 79 MG, UNK
     Route: 041
     Dates: start: 20170704, end: 20170704
  35. ONCOVIN [Suspect]
     Active Substance: VINCRISTINE SULFATE
     Dosage: 2 MG, UNK
     Route: 041
     Dates: start: 20170523, end: 20170523
  36. ONCOVIN [Suspect]
     Active Substance: VINCRISTINE SULFATE
     Dosage: 2 MG, UNK
     Route: 041
     Dates: start: 20170815, end: 20170815
  37. PREDONINE [Suspect]
     Active Substance: PREDNISOLONE
     Indication: NON-HODGKIN^S LYMPHOMA STAGE II
     Dosage: 100 MG, UNK
     Route: 048
     Dates: start: 20170502, end: 20170506
  38. PREDONINE [Suspect]
     Active Substance: PREDNISOLONE
     Dosage: 100 MG, UNK
     Route: 048
     Dates: start: 20170523, end: 20170527
  39. CYCLOPHOSPHAMIDE. [Suspect]
     Active Substance: CYCLOPHOSPHAMIDE
     Dosage: 1200 MG, UNK
     Route: 041
     Dates: start: 20170704, end: 20170704
  40. PREDONINE [Suspect]
     Active Substance: PREDNISOLONE
     Dosage: 100 MG, UNK
     Route: 048
     Dates: start: 20170704, end: 20170708
  41. RITUXAN [Suspect]
     Active Substance: RITUXIMAB
     Dosage: 600 MG, UNK
     Route: 041
     Dates: start: 20170530, end: 20170530
  42. ZETIA [Concomitant]
     Active Substance: EZETIMIBE
     Indication: DYSLIPIDAEMIA
     Dosage: UNK
     Route: 048
  43. DIART [Concomitant]
     Active Substance: AZOSEMIDE
     Indication: HYPERTENSION
     Dosage: UNK
     Route: 048

REACTIONS (4)
  - Platelet count decreased [Recovered/Resolved]
  - Hypoaesthesia [Recovering/Resolving]
  - Renal impairment [Recovered/Resolved]
  - Anaemia [Recovered/Resolved]

NARRATIVE: CASE EVENT DATE: 20170506
